FAERS Safety Report 8964419 (Version 1)
Quarter: 2012Q4

REPORT INFORMATION
  Report Type: 
  Country: CA (occurrence: CA)
  Receive Date: 20121213
  Receipt Date: 20121213
  Transmission Date: 20130627
  Serious: Yes (Hospitalization, Other)
  Sender: FDA-Public Use
  Company Number: CA-ROCHE-1168471

PATIENT
  Age: 48 Year
  Sex: Female
  Weight: 79.4 kg

DRUGS (7)
  1. XOLAIR [Suspect]
     Indication: ASTHMA
     Route: 058
     Dates: start: 20090225
  2. XOLAIR [Suspect]
     Route: 058
     Dates: start: 20090703
  3. XOLAIR [Suspect]
     Route: 058
     Dates: start: 20090911
  4. XOLAIR [Suspect]
     Route: 058
     Dates: start: 20091106
  5. XOLAIR [Suspect]
     Route: 058
     Dates: start: 20091204
  6. XOLAIR [Suspect]
     Route: 058
     Dates: start: 20100115
  7. XOLAIR [Suspect]
     Route: 058
     Dates: start: 20120413

REACTIONS (25)
  - Lung infection [Unknown]
  - Pneumonia [Unknown]
  - Salivary hypersecretion [Unknown]
  - Asthma [Unknown]
  - Bronchitis [Unknown]
  - Influenza [Recovered/Resolved]
  - Nasopharyngitis [Unknown]
  - Oxygen saturation decreased [Unknown]
  - Productive cough [Unknown]
  - Pyrexia [Unknown]
  - Rhinorrhoea [Unknown]
  - Sneezing [Unknown]
  - Cough [Unknown]
  - Oropharyngeal pain [Unknown]
  - Upper-airway cough syndrome [Unknown]
  - Nasal congestion [Unknown]
  - Condition aggravated [Unknown]
  - Fatigue [Unknown]
  - Blood pressure decreased [Unknown]
  - Wheezing [Unknown]
  - Lung disorder [Unknown]
  - Malaise [Not Recovered/Not Resolved]
  - Weight decreased [Unknown]
  - Sensation of heaviness [Unknown]
  - Sputum discoloured [Unknown]
